FAERS Safety Report 4775381-X (Version None)
Quarter: 2005Q3

REPORT INFORMATION
  Report Type: 
  Country: None (occurrence: None)
  Receive Date: 20050920
  Receipt Date: 20050831
  Transmission Date: 20060218
  Serious: Yes (Other)
  Sender: FDA-Public Use
  Company Number: PAR_0182_2005

PATIENT
  Sex: Female

DRUGS (1)
  1. LISINOPRIL [Suspect]
     Dosage: 5 MG PO
     Route: 048
     Dates: start: 20030101

REACTIONS (1)
  - NEUROPATHY PERIPHERAL [None]
